FAERS Safety Report 7931575-3 (Version None)
Quarter: 2011Q4

REPORT INFORMATION
  Report Type: 
  Country: None (occurrence: None)
  Receive Date: 20111121
  Receipt Date: 20111121
  Transmission Date: 20120403
  Serious: Yes (Other)
  Sender: FDA-Public Use
  Company Number: None

PATIENT
  Age: 58 Year
  Sex: Female
  Weight: 56.699 kg

DRUGS (1)
  1. CIPROFLOXACIN [Suspect]
     Indication: CYSTITIS
     Dosage: 2

REACTIONS (6)
  - SWOLLEN TONGUE [None]
  - NAUSEA [None]
  - HALLUCINATION [None]
  - DISORIENTATION [None]
  - DRUG HYPERSENSITIVITY [None]
  - HEADACHE [None]
